FAERS Safety Report 4747527-0 (Version None)
Quarter: 2005Q3

REPORT INFORMATION
  Report Type: 
  Country: None (occurrence: None)
  Receive Date: 20050817
  Receipt Date: 20050817
  Transmission Date: 20060218
  Serious: Yes (Other)
  Sender: FDA-Public Use
  Company Number: None

PATIENT
  Sex: Female
  Weight: 79.38 kg

DRUGS (4)
  1. GEODON [Suspect]
     Indication: DEPRESSION
     Dosage: 60MG  BEDTIME ORAL    1 NIGHT
     Route: 048
     Dates: start: 20050713, end: 20050713
  2. AMBIEN [Concomitant]
  3. ALBUTEROL [Concomitant]
  4. LEVAQUIN [Concomitant]

REACTIONS (5)
  - DYSTONIA [None]
  - GAZE PALSY [None]
  - MUSCULOSKELETAL STIFFNESS [None]
  - SPEECH DISORDER [None]
  - TORTICOLLIS [None]
